FAERS Safety Report 8956231 (Version 1)
Quarter: 2012Q4

REPORT INFORMATION
  Report Type: 
  Country: PL (occurrence: PL)
  Receive Date: 20121210
  Receipt Date: 20121210
  Transmission Date: 20130627
  Serious: Yes (Hospitalization)
  Sender: FDA-Public Use
  Company Number: PL-UCBSA-072547

PATIENT

DRUGS (1)
  1. KEPPRA [Suspect]
     Indication: JUVENILE MYOCLONIC EPILEPSY
     Dates: start: 2011

REACTIONS (1)
  - Leukaemia [Unknown]
